FAERS Safety Report 7991882-5 (Version None)
Quarter: 2011Q4

REPORT INFORMATION
  Report Type: 
  Country: None (occurrence: None)
  Receive Date: 20111219
  Receipt Date: 20111213
  Transmission Date: 20120403
  Serious: Yes (Life-Threatening, Disabling)
  Sender: FDA-Public Use
  Company Number: US-AMGEN-USACT2011066300

PATIENT
  Age: 73 Year
  Sex: Male
  Weight: 79.64 kg

DRUGS (25)
  1. ALOXI [Concomitant]
     Indication: NAUSEA
     Dosage: 0.25 MG, UNK
     Dates: start: 20101227, end: 20110411
  2. PREDNISONE TAB [Concomitant]
     Indication: COUGH
     Dosage: 80 MG, UNK
     Dates: start: 20110413, end: 20110418
  3. PREDNISONE TAB [Concomitant]
     Dates: start: 20110510, end: 20110514
  4. DARBEPOETIN ALFA [Suspect]
     Indication: ANAEMIA OF MALIGNANT DISEASE
     Dosage: UNK ML, UNK
     Dates: start: 20110103, end: 20110418
  5. KLOR-CON [Concomitant]
     Indication: HYPOKALAEMIA
     Dosage: 10 MEQ, UNK
     Dates: start: 20101019, end: 20110514
  6. PRILOSEC [Concomitant]
     Indication: GASTROOESOPHAGEAL REFLUX DISEASE
     Dosage: 20 MG, UNK
     Dates: start: 20101019, end: 20110514
  7. PREDNISONE TAB [Concomitant]
     Dates: start: 20110426, end: 20110502
  8. ASPIRIN [Concomitant]
     Dosage: 81 MG, UNK
     Dates: start: 20020615, end: 20110514
  9. TUSSIONEX [Concomitant]
     Indication: ANTIALLERGIC THERAPY
     Dates: start: 20101019, end: 20110514
  10. DOCETAXEL [Concomitant]
     Dosage: 50 MG, UNK
     Dates: start: 20101025, end: 20110411
  11. ACETAMINOPHEN AND HYDROCODONE BITARTRATE [Concomitant]
     Indication: PAIN
     Dates: start: 20101101, end: 20110514
  12. PREDNISONE TAB [Concomitant]
     Dates: start: 20110419, end: 20110425
  13. PREDNISONE TAB [Concomitant]
     Dates: start: 20110503, end: 20110509
  14. PROCHLORPERAZINE MALEATE [Concomitant]
     Dosage: 10 MG, UNK
     Dates: start: 20101025, end: 20110514
  15. CARBOPLATIN [Concomitant]
     Dosage: 267 MG, UNK
     Dates: start: 20101025, end: 20110411
  16. PROMETHAZINE W/ CODEINE [Concomitant]
     Indication: ANALGESIC THERAPY
     Dates: start: 20101019, end: 20110514
  17. ACETAMINOPHEN [Concomitant]
     Indication: ANALGESIC THERAPY
     Dosage: 1000 MG, UNK
     Dates: start: 20000615, end: 20110514
  18. TUSSIONEX [Concomitant]
     Indication: ANTITUSSIVE THERAPY
  19. FUROSEMIDE [Concomitant]
     Dosage: 40 MG, UNK
     Dates: start: 20101019, end: 20110514
  20. METOPROLOL SUCCINATE [Concomitant]
     Indication: HYPERTENSION
     Dosage: 100 MG, UNK
     Dates: start: 20000615, end: 20110514
  21. FERROUS GLUCONATE [Concomitant]
     Indication: MINERAL SUPPLEMENTATION
     Dosage: 325 MG, UNK
     Dates: start: 20101102, end: 20110514
  22. PROMETHAZINE W/ CODEINE [Concomitant]
     Indication: ANTITUSSIVE THERAPY
  23. DECADRON [Concomitant]
     Indication: NAUSEA
     Dosage: 20 MG, UNK
     Dates: start: 20101025, end: 20110411
  24. SENOKOT [Concomitant]
     Indication: CONSTIPATION
     Dates: start: 20101101, end: 20110514
  25. ZOFRAN [Concomitant]
     Dosage: 8 MG/KG, UNK
     Dates: start: 20101025, end: 20110514

REACTIONS (1)
  - PULMONARY EMBOLISM [None]
